FAERS Safety Report 16806002 (Version 2)
Quarter: 2019Q3

REPORT INFORMATION
  Report Type: Report from Study
  Country: CR (occurrence: CR)
  Receive Date: 20190913
  Receipt Date: 20190927
  Transmission Date: 20191005
  Serious: Yes (Other)
  Sender: FDA-Public Use
  Company Number: PHHY2019CR213815

PATIENT
  Sex: Male
  Weight: 104 kg

DRUGS (5)
  1. SANDOSTATIN LAR DEPOT [Suspect]
     Active Substance: OCTREOTIDE ACETATE
     Dosage: 1 DF, UNK
     Route: 065
     Dates: start: 20190909
  2. METFORMIN [Suspect]
     Active Substance: METFORMIN HYDROCHLORIDE
     Indication: DIABETES MELLITUS
     Dosage: UNK
     Route: 065
  3. ATENOLOL. [Concomitant]
     Active Substance: ATENOLOL
     Indication: HYPERTENSION
     Route: 065
  4. AMLODIPINE [Concomitant]
     Active Substance: AMLODIPINE BESYLATE
     Indication: HYPERTENSION
     Route: 065
  5. SANDOSTATIN LAR DEPOT [Suspect]
     Active Substance: OCTREOTIDE ACETATE
     Indication: NEUROENDOCRINE TUMOUR
     Dosage: 1 DF, QMO
     Route: 065
     Dates: start: 20190312

REACTIONS (4)
  - Metastases to liver [Unknown]
  - Intestinal metastasis [Unknown]
  - Diarrhoea [Unknown]
  - Blood glucose increased [Unknown]
